FAERS Safety Report 7440035-8 (Version None)
Quarter: 2011Q2

REPORT INFORMATION
  Report Type: 
  Country: None (occurrence: None)
  Receive Date: 20110427
  Receipt Date: 20101207
  Transmission Date: 20111010
  Serious: Yes (Other)
  Sender: FDA-Public Use
  Company Number: US-BAYER-201014448NA

PATIENT
  Age: 22 Year
  Sex: Female
  Weight: 67.12 kg

DRUGS (1)
  1. YASMIN [Suspect]
     Indication: CONTRACEPTION
     Dosage: UNK UNK, QD
     Route: 048
     Dates: start: 20070101, end: 20090401

REACTIONS (2)
  - GALLBLADDER INJURY [None]
  - ABDOMINAL PAIN [None]
